FAERS Safety Report 6387937-1 (Version None)
Quarter: 2009Q3

REPORT INFORMATION
  Report Type: 
  Country: None (occurrence: None)
  Receive Date: 20090930
  Receipt Date: 20090915
  Transmission Date: 20100115
  Serious: Yes (Other)
  Sender: FDA-Public Use
  Company Number: AUR-APL-2009-00572

PATIENT
  Age: 48 Year
  Sex: Female

DRUGS (9)
  1. ZIDOVUDINE [Suspect]
     Indication: HIV INFECTION
  2. DIDANOSINE [Suspect]
     Indication: HIV INFECTION
  3. STAVUDINE [Suspect]
     Indication: HIV INFECTION
  4. LAMIVUDINE [Suspect]
     Indication: HIV INFECTION
  5. TENOFOVIR [Suspect]
     Indication: HIV INFECTION
  6. NEVIRAPINE [Suspect]
     Indication: HIV INFECTION
  7. LOPINAVIR [Suspect]
     Indication: HIV INFECTION
  8. RITONAVIR [Suspect]
     Indication: HIV INFECTION
  9. SAQUINAVIR [Suspect]
     Indication: HIV INFECTION

REACTIONS (6)
  - ENCEPHALOPATHY [None]
  - HEPATIC FAILURE [None]
  - OESOPHAGEAL VARICES HAEMORRHAGE [None]
  - PORTAL HYPERTENSION [None]
  - PORTAL HYPERTENSIVE GASTROPATHY [None]
  - SPLENOMEGALY [None]
